FAERS Safety Report 6284891-8 (Version None)
Quarter: 2009Q3

REPORT INFORMATION
  Report Type: 
  Country: None (occurrence: None)
  Receive Date: 20090727
  Receipt Date: 20090710
  Transmission Date: 20100115
  Serious: Yes (Hospitalization)
  Sender: FDA-Public Use
  Company Number: B0585880A

PATIENT
  Sex: Female

DRUGS (8)
  1. ARTIST [Suspect]
     Indication: HYPERTENSION
     Dosage: 2.5MG TWICE PER DAY
     Route: 048
     Dates: start: 20080808, end: 20090609
  2. BEVACIZUMAB [Suspect]
     Dosage: 290MG EVERY TWO WEEKS
     Route: 042
     Dates: start: 20080725, end: 20090205
  3. OXALIPLATIN [Concomitant]
     Dates: start: 20080725, end: 20081005
  4. FLUOROURACIL [Concomitant]
     Dates: start: 20080725, end: 20090205
  5. DAI-KENCHU-TO [Concomitant]
     Dates: start: 20080625, end: 20090609
  6. GASMOTIN [Concomitant]
     Dates: start: 20080625, end: 20090609
  7. MAGNESIUM [Concomitant]
     Dates: start: 20080625, end: 20090609
  8. DIOVAN [Concomitant]
     Dates: start: 20080808, end: 20090609

REACTIONS (1)
  - DUODENAL PERFORATION [None]
